FAERS Safety Report 8391895-8 (Version None)
Quarter: 2012Q2

REPORT INFORMATION
  Report Type: 
  Country: None (occurrence: None)
  Receive Date: 20120529
  Receipt Date: 20120519
  Transmission Date: 20120825
  Serious: Yes (Other)
  Sender: FDA-Public Use
  Company Number: BR-VIIV HEALTHCARE LIMITED-A0979049A

PATIENT
  Age: 75 Year
  Sex: Male

DRUGS (3)
  1. RITONAVIR [Suspect]
     Indication: HIV INFECTION
     Route: 048
     Dates: start: 20080101
  2. LAMIVUDINE + ZIDOVUDINE [Suspect]
     Indication: HIV INFECTION
     Dosage: 450MG UNKNOWN
     Route: 048
     Dates: start: 20080101
  3. EFAVIRENZ [Suspect]
     Indication: HIV INFECTION
     Route: 048
     Dates: start: 20080101

REACTIONS (6)
  - HALLUCINATION [None]
  - SUICIDE ATTEMPT [None]
  - HYPERTENSION [None]
  - AGGRESSION [None]
  - OVERDOSE [None]
  - CONFUSIONAL STATE [None]
